FAERS Safety Report 9061807 (Version 1)
Quarter: 2013Q1

REPORT INFORMATION
  Report Type: Spontaneous
  Country: US (occurrence: US)
  Receive Date: 20130204
  Receipt Date: 20130204
  Transmission Date: 20140127
  Serious: Yes (Other)
  Sender: FDA-Public Use
  Company Number: PHEH2013US002737

PATIENT
  Age: 75 None
  Sex: Female

DRUGS (1)
  1. AFINITOR [Suspect]
     Indication: NEOPLASM MALIGNANT
     Dosage: 10 MG, DAILY
     Route: 048
     Dates: start: 20130118, end: 20130129

REACTIONS (2)
  - Contusion [Not Recovered/Not Resolved]
  - Alopecia [Not Recovered/Not Resolved]
